FAERS Safety Report 19395609 (Version 1)
Quarter: 2021Q2

REPORT INFORMATION
  Report Type: Report from Study
  Country: GB (occurrence: GB)
  Receive Date: 20210609
  Receipt Date: 20210609
  Transmission Date: 20210717
  Serious: Yes (Hospitalization)
  Sender: FDA-Public Use
  Company Number: GB-GW PHARMA-201912GBGW4563

PATIENT

DRUGS (8)
  1. EPIDIOLEX [Suspect]
     Active Substance: CANNABIDIOL
     Dosage: 10?15 MILLIGRAM/KILOGRAM, QD
     Route: 048
     Dates: start: 2019, end: 20190513
  2. CLOBAZAM. [Concomitant]
     Active Substance: CLOBAZAM
     Dosage: UNK DOSE INCREASED
     Route: 065
  3. TOPIRAMATE. [Concomitant]
     Active Substance: TOPIRAMATE
     Indication: PRODUCT USED FOR UNKNOWN INDICATION
     Dosage: UNK
     Route: 065
  4. STIRIPENTOL [Concomitant]
     Active Substance: STIRIPENTOL
     Indication: PRODUCT USED FOR UNKNOWN INDICATION
     Dosage: UNK
     Route: 065
  5. EPIDIOLEX [Suspect]
     Active Substance: CANNABIDIOL
     Indication: SEVERE MYOCLONIC EPILEPSY OF INFANCY
     Dosage: 5 MILLIGRAM/KILOGRAM/DAY
     Route: 048
     Dates: start: 20190418, end: 2019
  6. STIRIPENTOL [Concomitant]
     Active Substance: STIRIPENTOL
     Dosage: UNK DOSE DECREASED
     Route: 065
  7. SODIUM VALPROATE [Concomitant]
     Active Substance: VALPROATE SODIUM
     Indication: PRODUCT USED FOR UNKNOWN INDICATION
     Dosage: UNK
     Route: 065
  8. CLOBAZAM. [Concomitant]
     Active Substance: CLOBAZAM
     Indication: PRODUCT USED FOR UNKNOWN INDICATION
     Dosage: UNK
     Route: 065

REACTIONS (6)
  - Adenovirus infection [Unknown]
  - Seizure [Unknown]
  - Thrombocytopenia [Unknown]
  - Sepsis [Unknown]
  - Encephalopathy [Unknown]
  - Influenza [Unknown]
